FAERS Safety Report 7182861 (Version 8)
Quarter: 2013Q4

REPORT INFORMATION
  Report Type: Spontaneous
  Country: US (occurrence: US)
  Receive Date: 20091120
  Receipt Date: 20131017
  Transmission Date: 20140711
  Serious: Yes (Hospitalization)
  Sender: FDA-Public Use
  Company Number: US-BAYER-200938991NA

PATIENT
  Age: 23 Year
  Sex: Female
  Weight: 84 kg

DRUGS (16)
  1. YAZ [Suspect]
     Route: 048
     Dates: start: 2006, end: 20060915
  2. YASMIN [Suspect]
     Route: 048
     Dates: start: 2006, end: 20060915
  3. TOPROL [Concomitant]
     Dates: start: 2005, end: 20070615
  4. EXCEDRIN [CAFFEINE,PARACETAMOL] [Concomitant]
  5. ALBUTEROL [Concomitant]
  6. ZOLOFT [Concomitant]
     Dates: start: 2010
  7. ASPIRIN [Concomitant]
     Dates: start: 2006
  8. IBUPROFEN [Concomitant]
  9. Z-PAK [Concomitant]
     Indication: SINUSITIS
  10. PHENERGAN [PROMETHAZINE] [Concomitant]
     Indication: PAIN
     Dosage: UNK
     Dates: start: 20060915
  11. DARVOCET [Concomitant]
  12. ATARAX [ALPRAZOLAM] [Concomitant]
     Indication: PRURITUS
  13. ATARAX [ALPRAZOLAM] [Concomitant]
     Indication: RASH
  14. PRENATAL VITAMINS [Concomitant]
  15. LOVASTATIN [Concomitant]
  16. ACIPHEX [Concomitant]

REACTIONS (2)
  - Pulmonary embolism [Unknown]
  - Thrombosis [Unknown]
